FAERS Safety Report 17237400 (Version 1)
Quarter: 2020Q1

REPORT INFORMATION
  Report Type: Report from Study
  Country: BE (occurrence: BE)
  Receive Date: 20200106
  Receipt Date: 20200106
  Transmission Date: 20200409
  Serious: No
  Sender: FDA-Public Use
  Company Number: BE-BEH-2019110857

PATIENT
  Age: 4 Year
  Sex: Female

DRUGS (2)
  1. HIZENTRA [Suspect]
     Active Substance: HUMAN IMMUNOGLOBULIN G
     Indication: SELECTIVE POLYSACCHARIDE ANTIBODY DEFICIENCY
     Dosage: 1.8 GRAM, QW
     Route: 065
     Dates: start: 20191216
  2. HIZENTRA [Suspect]
     Active Substance: HUMAN IMMUNOGLOBULIN G
     Dosage: UNK
     Route: 065
     Dates: start: 20190308

REACTIONS (1)
  - Injection site irritation [Recovering/Resolving]

NARRATIVE: CASE EVENT DATE: 20191216
